FAERS Safety Report 10698465 (Version 1)
Quarter: 2014Q3

REPORT INFORMATION
  Report Type: Spontaneous
  Country: US (occurrence: US)
  Receive Date: 20140924
  Receipt Date: 20140924
  Transmission Date: 20150326
  Serious: Yes (Other)
  Sender: FDA-Public Use
  Company Number: US-APOTEX-2014AP004785

PATIENT
  Age: 27 Year
  Sex: Female

DRUGS (1)
  1. CYCLOSPORINE. [Suspect]
     Active Substance: CYCLOSPORINE
     Indication: IMMUNOSUPPRESSANT DRUG THERAPY
     Route: 048

REACTIONS (1)
  - Posterior reversible encephalopathy syndrome [Recovered/Resolved]
